FAERS Safety Report 13058253 (Version 3)
Quarter: 2017Q2

REPORT INFORMATION
  Report Type: Report from Study
  Country: JP (occurrence: JP)
  Receive Date: 20161223
  Receipt Date: 20170615
  Transmission Date: 20170830
  Serious: Yes (Hospitalization)
  Sender: FDA-Public Use
  Company Number: JP-ASTRAZENECA-2016SF33764

PATIENT
  Age: 23668 Day
  Sex: Female

DRUGS (18)
  1. FORXIGA [Suspect]
     Active Substance: DAPAGLIFLOZIN
     Indication: TYPE 2 DIABETES MELLITUS
     Route: 048
     Dates: start: 20150718, end: 20160524
  2. PARIET [Concomitant]
     Active Substance: RABEPRAZOLE SODIUM
     Route: 048
  3. MAGLAX [Concomitant]
     Active Substance: MAGNESIUM OXIDE
     Route: 048
  4. METHYCOOL [Concomitant]
     Active Substance: METHYLCOBALAMIN
     Route: 048
  5. NOVOLIN R [Concomitant]
     Active Substance: INSULIN HUMAN
     Indication: TYPE 2 DIABETES MELLITUS
  6. PREDONINE [Concomitant]
     Active Substance: PREDNISOLONE
     Route: 048
  7. ONEALFA [Concomitant]
     Active Substance: ALFACALCIDOL
     Route: 048
  8. EPADEL S [Concomitant]
     Active Substance: ICOSAPENT ETHYL
     Route: 048
  9. NICO [Concomitant]
     Route: 048
  10. NORMALN [Concomitant]
     Route: 048
     Dates: end: 20151110
  11. NEUROTROPIN [Concomitant]
     Active Substance: NEUROTROPIN
     Route: 048
  12. GASMOTIN [Concomitant]
     Active Substance: MOSAPRIDE CITRATE
     Route: 048
  13. FORXIGA [Suspect]
     Active Substance: DAPAGLIFLOZIN
     Indication: TYPE 2 DIABETES MELLITUS
     Route: 048
     Dates: start: 20160610
  14. MUCOSTA [Concomitant]
     Active Substance: REBAMIPIDE
     Route: 048
     Dates: start: 20160926
  15. METGLUCO [Concomitant]
     Active Substance: METFORMIN HYDROCHLORIDE
     Indication: TYPE 2 DIABETES MELLITUS
     Route: 048
  16. LOXONIN [Concomitant]
     Active Substance: LOXOPROFEN SODIUM
     Dosage: AS REQUIRED
     Route: 062
  17. ZETIA [Concomitant]
     Active Substance: EZETIMIBE
     Route: 048
  18. LYRICA [Concomitant]
     Active Substance: PREGABALIN
     Route: 048

REACTIONS (4)
  - Gastroenteritis [Recovering/Resolving]
  - Dehydration [Recovering/Resolving]
  - Gastroenteritis [Recovering/Resolving]
  - Ketosis [Recovering/Resolving]

NARRATIVE: CASE EVENT DATE: 20151210
